FAERS Safety Report 9948081 (Version 1)
Quarter: 2014Q1

REPORT INFORMATION
  Report Type: Report from Study
  Country: US (occurrence: US)
  Receive Date: 20140303
  Receipt Date: 20140303
  Transmission Date: 20141002
  Serious: No
  Sender: FDA-Public Use
  Company Number: US-ABBVIE-13P-163-1062828-00

PATIENT
  Age: 41 Year
  Sex: Male

DRUGS (12)
  1. HUMIRA [Suspect]
     Indication: CROHN^S DISEASE
     Dates: start: 20121011
  2. HUMIRA [Suspect]
  3. PENTASA [Concomitant]
     Indication: CROHN^S DISEASE
  4. OMEPRAZOLE [Concomitant]
     Indication: DYSPEPSIA
     Dosage: PRESCRIBED AS TWICE DAILY BUT TAKES DAILY
  5. TRAZODONE [Concomitant]
     Indication: MENTAL DISORDER
     Dosage: AT BEDTIME
  6. DEPAKOTE [Concomitant]
     Indication: MENTAL DISORDER
     Dosage: 1 AT BEDTIME
  7. ZYPREXA [Concomitant]
     Indication: MENTAL DISORDER
     Dosage: AT BEDTIME
  8. KLONOPIN [Concomitant]
     Indication: MENTAL DISORDER
     Dosage: AT BEDTIME
  9. PREDNISONE [Concomitant]
     Indication: INTESTINAL STENOSIS
     Dosage: 4 DAILY FOR 2 WEEKS
  10. PREDNISONE [Concomitant]
     Dosage: 3 DAILY FOR 2 WEEKS
  11. PREDNISONE [Concomitant]
     Dosage: 2 DAILY FOR 2 WEEKS
  12. PREDNISONE [Concomitant]
     Dosage: 1 DAILY FOR 2 WEEKS

REACTIONS (7)
  - Proctalgia [Not Recovered/Not Resolved]
  - Intestinal stenosis [Unknown]
  - Hypertension [Unknown]
  - Pain in extremity [Unknown]
  - Abdominal pain [Unknown]
  - Diarrhoea [Unknown]
  - Blood potassium decreased [Unknown]
